FAERS Safety Report 15506284 (Version 1)
Quarter: 2018Q4

REPORT INFORMATION
  Report Type: Report from Study
  Country: CA (occurrence: CA)
  Receive Date: 20181016
  Receipt Date: 20181016
  Transmission Date: 20190205
  Serious: Yes (Other)
  Sender: FDA-Public Use
  Company Number: CA-INCYTE CORPORATION-2017IN007278

PATIENT

DRUGS (4)
  1. JAKAVI [Suspect]
     Active Substance: RUXOLITINIB
     Indication: MYELOFIBROSIS
     Dosage: 10 MG, BID
     Route: 048
     Dates: start: 20170713
  2. JAKAVI [Suspect]
     Active Substance: RUXOLITINIB
     Dosage: 10 MG, QD
     Route: 048
  3. JAKAVI [Suspect]
     Active Substance: RUXOLITINIB
     Dosage: 5 MG, QD
     Route: 048
  4. JAKAVI [Suspect]
     Active Substance: RUXOLITINIB
     Dosage: 5 MG, QD
     Route: 048
     Dates: start: 20171116

REACTIONS (15)
  - Hair texture abnormal [Recovering/Resolving]
  - Pruritus [Recovering/Resolving]
  - Asthenia [Unknown]
  - Dizziness [Recovering/Resolving]
  - Pollakiuria [Not Recovered/Not Resolved]
  - Somnolence [Unknown]
  - Chronic leukaemia [Unknown]
  - Platelet count increased [Unknown]
  - Platelet count decreased [Unknown]
  - Dizziness [Recovered/Resolved]
  - Haemoglobin decreased [Unknown]
  - Eating disorder [Unknown]
  - Blood count abnormal [Unknown]
  - Contusion [Unknown]
  - Drug intolerance [Unknown]

NARRATIVE: CASE EVENT DATE: 20170918
